FAERS Safety Report 15009542 (Version 1)
Quarter: 2018Q2

REPORT INFORMATION
  Report Type: Spontaneous
  Country: CZ (occurrence: CZ)
  Receive Date: 20180614
  Receipt Date: 20180614
  Transmission Date: 20180711
  Serious: Yes (Other)
  Sender: FDA-Public Use
  Company Number: CZ-TEVA-2018-CZ-906602

PATIENT
  Age: 53 Year
  Sex: Female

DRUGS (3)
  1. FLUDARABINE [Suspect]
     Active Substance: FLUDARABINE PHOSPHATE
     Indication: CHRONIC LYMPHOCYTIC LEUKAEMIA
     Dosage: DAY 2-4
     Route: 042
     Dates: start: 200811, end: 2009
  2. CYCLOPHOSPHAMIDE. [Suspect]
     Active Substance: CYCLOPHOSPHAMIDE
     Dosage: ON THE DAY 2-4
     Route: 065
     Dates: start: 200811, end: 2009
  3. RITUXIMAB. [Suspect]
     Active Substance: RITUXIMAB
     Dosage: 375 MG/M2 IN THE FIRST CYCLE AND 500 MG/M2 FROM THE 2ND CYCLE ON THE DAY 1;
     Route: 065
     Dates: start: 200811, end: 2009

REACTIONS (4)
  - Febrile neutropenia [Recovered/Resolved]
  - Infection [Recovered/Resolved]
  - Clostridium colitis [Recovered/Resolved]
  - Device related sepsis [Recovered/Resolved]

NARRATIVE: CASE EVENT DATE: 2008
